FAERS Safety Report 5268736-0 (Version None)
Quarter: 2007Q1

REPORT INFORMATION
  Report Type: 
  Country: None (occurrence: None)
  Receive Date: 20061213
  Receipt Date: 20040505
  Transmission Date: 20070707
  Serious: Yes (Other)
  Sender: FDA-Public Use
  Company Number: 2004UW09349

PATIENT

DRUGS (2)
  1. IRESSA [Suspect]
  2. IRESSA [Suspect]
     Dates: start: 20040504

REACTIONS (4)
  - FATIGUE [None]
  - GLOSSODYNIA [None]
  - SWOLLEN TONGUE [None]
  - TONGUE DISORDER [None]
